FAERS Safety Report 4630764-3 (Version None)
Quarter: 2005Q2

REPORT INFORMATION
  Report Type: 
  Country: None (occurrence: None)
  Receive Date: 20050406
  Receipt Date: 20050330
  Transmission Date: 20051028
  Serious: Yes (Hospitalization)
  Sender: FDA-Public Use
  Company Number: 2005UW05001

PATIENT
  Age: 63 Year
  Sex: Female

DRUGS (10)
  1. DIPRIVAN [Suspect]
     Indication: SEDATION
     Dosage: 10 MG/ML IV
     Route: 042
     Dates: start: 20050315
  2. MUCOMYST [Concomitant]
  3. ALBUMIN HUMAN ^ARMOUR^ [Concomitant]
  4. NORVASC [Concomitant]
  5. COMBIVENT [Concomitant]
  6. DOBUTAMINE HCL [Concomitant]
  7. PROCRIT [Concomitant]
  8. PEPCID [Concomitant]
  9. NO MATCH [Concomitant]
  10. NIMOTOP [Concomitant]

REACTIONS (1)
  - PARALYSIS FLACCID [None]
